FAERS Safety Report 14081683 (Version 4)
Quarter: 2017Q4

REPORT INFORMATION
  Report Type: Spontaneous
  Country: SE (occurrence: SE)
  Receive Date: 20171013
  Receipt Date: 20171130
  Transmission Date: 20180321
  Serious: Yes (Death, Hospitalization, Other)
  Sender: FDA-Public Use
  Company Number: SE-CELGENEUS-SWE-20170905573

PATIENT
  Sex: Male

DRUGS (6)
  1. FENTANYL. [Concomitant]
     Active Substance: FENTANYL
     Indication: PRODUCT USED FOR UNKNOWN INDICATION
     Route: 065
  2. NIVOLUMAB [Concomitant]
     Active Substance: NIVOLUMAB
     Indication: PLASMA CELL MYELOMA
     Route: 041
     Dates: start: 20170831, end: 20170831
  3. GLYCOPYRRONIUM [Concomitant]
     Active Substance: GLYCOPYRRONIUM
     Indication: PRODUCT USED FOR UNKNOWN INDICATION
     Route: 065
  4. POMALIDOMIDE [Suspect]
     Active Substance: POMALIDOMIDE
     Route: 048
     Dates: start: 20170906, end: 20170907
  5. POMALIDOMIDE [Suspect]
     Active Substance: POMALIDOMIDE
     Indication: PLASMA CELL MYELOMA
     Route: 048
     Dates: start: 20170831, end: 20170903
  6. DEXAMETHASONE ORAL [Suspect]
     Active Substance: DEXAMETHASONE
     Indication: PLASMA CELL MYELOMA
     Route: 048
     Dates: start: 20170831, end: 20170907

REACTIONS (3)
  - Plasma cell myeloma [Fatal]
  - Cardiac failure [Recovered/Resolved]
  - Pleural effusion [Recovered/Resolved]

NARRATIVE: CASE EVENT DATE: 20170901
